FAERS Safety Report 6408592-8 (Version None)
Quarter: 2009Q4

REPORT INFORMATION
  Report Type: 
  Country: None (occurrence: None)
  Receive Date: 20091021
  Receipt Date: 20091019
  Transmission Date: 20100525
  Serious: Yes (Hospitalization)
  Sender: FDA-Public Use
  Company Number: US-TEVA-212778USA

PATIENT
  Sex: Female

DRUGS (4)
  1. CLOZAPINE [Suspect]
     Route: 048
  2. OXCARBAZEPINE [Concomitant]
  3. VALPROATE SODIUM [Concomitant]
  4. PAROXETINE HCL [Concomitant]

REACTIONS (2)
  - ANKLE FRACTURE [None]
  - FALL [None]
